FAERS Safety Report 5030869-1 (Version None)
Quarter: 2006Q2

REPORT INFORMATION
  Report Type: 
  Country: None (occurrence: None)
  Receive Date: 20060503
  Receipt Date: 20060109
  Transmission Date: 20061013
  Serious: No
  Sender: FDA-Public Use
  Company Number: FACT0600012

PATIENT
  Age: 56 Year
  Sex: Female
  Weight: 68 kg

DRUGS (4)
  1. FACTIVE [Suspect]
     Indication: RESPIRATORY TRACT INFECTION BACTERIAL
     Dosage: 640 MG, SINGLE, ORAL
     Route: 048
     Dates: start: 20060109, end: 20060109
  2. CLARITHROMYCIN (CLARITHROMYCIN) 500MG [Suspect]
     Indication: PNEUMONIA
     Dosage: 500 MG, QD, ORAL
     Route: 048
  3. SYNTHROID [Concomitant]
  4. GUAIFENEX (GUAIFENESIN, PHENYLEPHRINE HYDROCHLORIDE, PHENYLPROPANOLAMI [Concomitant]

REACTIONS (2)
  - INAPPROPRIATE SCHEDULE OF DRUG ADMINISTRATION [None]
  - VISION BLURRED [None]
